FAERS Safety Report 16049310 (Version 4)
Quarter: 2019Q3

REPORT INFORMATION
  Report Type: Spontaneous
  Country: US (occurrence: US)
  Receive Date: 20190307
  Receipt Date: 20190723
  Transmission Date: 20191004
  Serious: No
  Sender: FDA-Public Use
  Company Number: US-TEVA-2019-US-1009902

PATIENT
  Sex: Female

DRUGS (5)
  1. ESTROPIPATE TABLET [Suspect]
     Active Substance: ESTROPIPATE
     Route: 065
  2. ESTRADIOL. [Suspect]
     Active Substance: ESTRADIOL
     Dosage: HALF DOSAGE OF 100 MG
  3. XANAX [Concomitant]
     Active Substance: ALPRAZOLAM
     Dosage: 0.25
  4. AMBIEN [Concomitant]
     Active Substance: ZOLPIDEM TARTRATE
     Dosage: HS (EVERY NIGHT)
  5. SOMA [Concomitant]
     Active Substance: CARISOPRODOL

REACTIONS (5)
  - Adverse reaction [Unknown]
  - Drug ineffective [Unknown]
  - Breast tenderness [Recovered/Resolved]
  - Therapy change [Unknown]
  - Chest pain [Recovered/Resolved]

NARRATIVE: CASE EVENT DATE: 201903
